FAERS Safety Report 6112615-3 (Version None)
Quarter: 2009Q1

REPORT INFORMATION
  Report Type: 
  Country: None (occurrence: None)
  Receive Date: 20090310
  Receipt Date: 20090224
  Transmission Date: 20090719
  Serious: Yes (Hospitalization)
  Sender: FDA-Public Use
  Company Number: 2009000521

PATIENT
  Age: 66 Year
  Sex: Male

DRUGS (5)
  1. ERLOTINIB (ERLOTINIB) (TABLET) (ERLOTINIB) [Suspect]
     Indication: PANCREATIC CARCINOMA
     Dosage: (150 MG, QD), ORAL
     Route: 048
     Dates: start: 20090123
  2. GEMCITABINE [Suspect]
     Indication: PANCREATIC CARCINOMA
     Dosage: (2000 MG, WEEKLY), INTRA
     Dates: start: 20090123
  3. ENOXAPARIN SODIUM [Concomitant]
  4. PANTOPRAZOLE SODIUM [Concomitant]
  5. XELEVIA [Concomitant]

REACTIONS (3)
  - CHOLANGITIS [None]
  - PAIN [None]
  - STENT OCCLUSION [None]
